FAERS Safety Report 5975734-8 (Version None)
Quarter: 2008Q4

REPORT INFORMATION
  Report Type: 
  Country: None (occurrence: None)
  Receive Date: 20081202
  Receipt Date: 20081126
  Transmission Date: 20090506
  Serious: Yes (Hospitalization)
  Sender: FDA-Public Use
  Company Number: ES-PURDUE-GBR_2008_0004638

PATIENT
  Age: 82 Year
  Sex: Female
  Weight: 80 kg

DRUGS (4)
  1. MST CONTINUS TABLETS 10 MG [Suspect]
     Indication: BACK PAIN
     Dosage: 10 MG, DAILY
     Route: 065
  2. GABAPENTIN [Suspect]
     Indication: BACK PAIN
     Dosage: 600 MG, Q8H
     Route: 065
  3. GABAPENTIN [Suspect]
     Dosage: 300 MG, Q8H
     Route: 065
  4. GABAPENTIN [Suspect]
     Dosage: 1200 MG, DAILY
     Route: 065

REACTIONS (7)
  - CHOREA [None]
  - DISORIENTATION [None]
  - DRUG INTERACTION [None]
  - HALLUCINATION, VISUAL [None]
  - PSYCHOTIC DISORDER [None]
  - RENAL IMPAIRMENT [None]
  - SOMNOLENCE [None]
